FAERS Safety Report 8014061-4 (Version None)
Quarter: 2011Q4

REPORT INFORMATION
  Report Type: 
  Country: None (occurrence: None)
  Receive Date: 20111229
  Receipt Date: 20111107
  Transmission Date: 20120403
  Serious: Yes (Life-Threatening)
  Sender: FDA-Public Use
  Company Number: US-ROCHE-1011372

PATIENT
  Age: 61 Year
  Sex: Male
  Weight: 56.341 kg

DRUGS (21)
  1. TOPIRAMATE [Suspect]
     Indication: ARTHRALGIA
     Dates: end: 20111012
  2. ASPIRIN [Concomitant]
  3. TEMOVATE [Concomitant]
  4. INDOMETHACIN [Concomitant]
  5. OMEPRAZOLE [Concomitant]
  6. SIMVASTATIN [Concomitant]
  7. TRAMADOL HCL [Concomitant]
  8. DOCETAXEL [Suspect]
     Indication: PROSTATE CANCER
     Dates: end: 20110207
  9. LIDODERM [Concomitant]
  10. AMBIEN [Concomitant]
  11. LEUPRORELIN ACETATE [Suspect]
     Indication: PROSTATE CANCER
     Route: 030
     Dates: start: 20101206, end: 20111107
  12. AVASTIN [Suspect]
     Indication: PROSTATE CANCER
     Dates: end: 20110207
  13. BICALUTAMIDE [Suspect]
     Indication: PROSTATE CANCER
     Route: 048
     Dates: start: 20110228, end: 20111107
  14. LORAZEPAM [Concomitant]
  15. LYRICA [Concomitant]
  16. TOPROL-XL [Concomitant]
  17. AMLODIPINE [Concomitant]
  18. CLONIDINE [Concomitant]
  19. MELATONIN [Concomitant]
  20. VITAMIN D [Concomitant]
  21. CIALIS [Concomitant]

REACTIONS (2)
  - SUICIDAL IDEATION [None]
  - PROSTATIC SPECIFIC ANTIGEN INCREASED [None]
